FAERS Safety Report 21425161 (Version 2)
Quarter: 2022Q4

REPORT INFORMATION
  Report Type: Spontaneous
  Country: JP (occurrence: JP)
  Receive Date: 20221008
  Receipt Date: 20221018
  Transmission Date: 20230112
  Serious: Yes (Other)
  Sender: FDA-Public Use
  Company Number: JP-TEVA-2022-JP-003645J

PATIENT
  Age: 91 Year
  Sex: Female

DRUGS (1)
  1. LANSOPRAZOLE [Suspect]
     Active Substance: LANSOPRAZOLE
     Indication: Product used for unknown indication
     Dosage: DOSAGE IS UNKNOWN
     Route: 048
     Dates: start: 201903

REACTIONS (2)
  - Delirium [Unknown]
  - Hallucination [Unknown]

NARRATIVE: CASE EVENT DATE: 20200401
